FAERS Safety Report 5955408-X (Version None)
Quarter: 2008Q4

REPORT INFORMATION
  Report Type: 
  Country: None (occurrence: None)
  Receive Date: 20081117
  Receipt Date: 20081112
  Transmission Date: 20090506
  Serious: Yes (Disabling)
  Sender: FDA-Public Use
  Company Number: US-GENENTECH-265652

PATIENT
  Sex: Male
  Weight: 101.59 kg

DRUGS (27)
  1. ERLOTINIB [Suspect]
     Indication: NON-SMALL CELL LUNG CANCER
     Dosage: 150 MG, QD
     Route: 048
     Dates: start: 20080105, end: 20080731
  2. AVASTIN [Suspect]
     Indication: NON-SMALL CELL LUNG CANCER
     Dosage: 1636 MG, Q3W
     Route: 042
     Dates: start: 20070928, end: 20080711
  3. PARAPLATIN [Suspect]
     Indication: NON-SMALL CELL LUNG CANCER
     Dosage: UNK
     Dates: start: 20070928, end: 20071130
  4. TAXOL [Suspect]
     Indication: NON-SMALL CELL LUNG CANCER
     Dosage: UNK
     Dates: start: 20070928, end: 20071130
  5. LIPITOR [Concomitant]
     Indication: HYPERCHOLESTEROLAEMIA
  6. LOTREL [Concomitant]
     Indication: HYPERTENSION
     Dosage: 1 TABLET, QD
     Route: 048
     Dates: start: 20040101
  7. MOTRIN [Concomitant]
     Indication: PAIN
     Dosage: 800 MG, PRN
     Dates: start: 20070601
  8. VICODIN ES [Concomitant]
     Indication: PAIN
     Dosage: 10 MG, PRN
     Route: 048
     Dates: start: 20070801
  9. VICODIN ES [Concomitant]
     Dosage: 500 MG, PRN
     Route: 048
     Dates: start: 20070801
  10. GLUCOSAMINE [Concomitant]
     Indication: ARTHRITIS
     Dosage: 1500 MG, QD
     Route: 048
     Dates: start: 19940101
  11. CHONDROITIN [Concomitant]
     Indication: ARTHRITIS
     Dosage: 1200 MG, QD
     Route: 048
     Dates: start: 19940101
  12. DYAZIDE [Concomitant]
     Indication: HYPERTENSION
     Dosage: 37.5 MG, QD
     Route: 048
     Dates: start: 20020101
  13. PROTONIX [Concomitant]
     Indication: GASTROINTESTINAL DISORDER
     Dosage: 40 MG, QD
     Route: 048
     Dates: start: 20080201
  14. SENNA [Concomitant]
     Indication: DRUG USE FOR UNKNOWN INDICATION
     Dosage: 1 TABLET, BID
     Route: 048
     Dates: start: 20080201
  15. FLOMAX [Concomitant]
     Indication: PROSTATIC DISORDER
     Dosage: 0.4 MG, QD
     Route: 048
     Dates: start: 20080201
  16. OXYCONTIN [Concomitant]
     Indication: PAIN
     Dosage: 10 MG, Q8H
     Route: 048
  17. DEXAMETHASONE 0.5MG TAB [Concomitant]
     Indication: NAUSEA
     Dosage: 1 MG, Q6H
  18. DEXAMETHASONE 0.5MG TAB [Concomitant]
     Dosage: 1 MG, Q6H
     Route: 048
     Dates: start: 20081101
  19. XALATAN [Concomitant]
     Indication: GLAUCOMA
     Dosage: 125 MG, QHS
     Route: 047
     Dates: start: 20080201
  20. LOVENOX [Concomitant]
     Indication: DEEP VEIN THROMBOSIS
     Dosage: 100 MG, QD
     Route: 058
  21. GLAUCOMA EYE DROPS (UNK INGREDIENTS) [Concomitant]
     Indication: GLAUCOMA
  22. LUMIGAN [Concomitant]
     Indication: DRUG USE FOR UNKNOWN INDICATION
     Dosage: 0.03 %, QHS
     Route: 047
     Dates: start: 20080601
  23. CELEXA [Concomitant]
     Indication: DEPRESSION
     Dosage: 20 MG, QD
     Route: 048
     Dates: start: 20080601
  24. ATIVAN [Concomitant]
     Indication: NAUSEA
     Dosage: 0.5 MG, Q6H
     Route: 048
  25. COUMADIN [Concomitant]
     Indication: DRUG USE FOR UNKNOWN INDICATION
  26. VICODIN [Concomitant]
     Indication: DRUG USE FOR UNKNOWN INDICATION
     Dosage: 10 MG, Q8H
     Route: 048
  27. PROSTATE SUPPORT [Concomitant]
     Indication: DRUG USE FOR UNKNOWN INDICATION
     Dosage: 1 TABLET, QD
     Route: 048
     Dates: start: 20080501

REACTIONS (1)
  - VISION BLURRED [None]
